FAERS Safety Report 6157841-2 (Version None)
Quarter: 2009Q2

REPORT INFORMATION
  Report Type: 
  Country: None (occurrence: None)
  Receive Date: 20090414
  Receipt Date: 20090402
  Transmission Date: 20091009
  Serious: Yes (Other)
  Sender: FDA-Public Use
  Company Number: ACO_00530_2009

PATIENT
  Age: 40 Year
  Sex: Female

DRUGS (2)
  1. TIZANIDINE HCL [Suspect]
     Indication: PARAESTHESIA
     Dosage: (DF ORAL)
     Route: 048
     Dates: end: 20080101
  2. TIZANIDINE HCL [Suspect]
     Indication: PARAESTHESIA
     Dosage: (DF ORAL)
     Route: 048
     Dates: start: 20080101, end: 20080101

REACTIONS (2)
  - CERVICOBRACHIAL SYNDROME [None]
  - ROAD TRAFFIC ACCIDENT [None]
